FAERS Safety Report 4377029-5 (Version None)
Quarter: 2004Q2

REPORT INFORMATION
  Report Type: 
  Country: None (occurrence: None)
  Receive Date: 20040614
  Receipt Date: 20040524
  Transmission Date: 20050107
  Serious: Yes (Hospitalization)
  Sender: FDA-Public Use
  Company Number: IT-GLAXOSMITHKLINE-B0333930A

PATIENT
  Age: 60 Year
  Sex: Male

DRUGS (3)
  1. VINORELBINE TARTRATE [Suspect]
     Dosage: 25MGM2 PER DAY
     Route: 065
  2. CISPLATIN [Suspect]
     Dosage: 75MGM2 PER DAY
     Route: 065
  3. DEXAMETHASONE [Suspect]
     Route: 030

REACTIONS (7)
  - ABDOMINAL PAIN [None]
  - HAEMOGLOBIN DECREASED [None]
  - HAMARTOMA [None]
  - PAIN [None]
  - PERITONEAL HAEMORRHAGE [None]
  - SPLENIC RUPTURE [None]
  - WHITE BLOOD CELL COUNT INCREASED [None]
